FAERS Safety Report 5993898-7 (Version None)
Quarter: 2008Q4

REPORT INFORMATION
  Report Type: 
  Country: None (occurrence: None)
  Receive Date: 20081212
  Receipt Date: 20081105
  Transmission Date: 20090506
  Serious: No
  Sender: FDA-Public Use
  Company Number: US-ABBOTT-08P-163-0463249-00

PATIENT
  Sex: Male
  Weight: 97.61 kg

DRUGS (14)
  1. HUMIRA [Suspect]
     Indication: RHEUMATOID ARTHRITIS
     Route: 058
     Dates: start: 20071230
  2. FOLIC ACID [Concomitant]
     Indication: VITAMIN SUPPLEMENTATION
     Route: 048
     Dates: end: 20080702
  3. FOLIC ACID [Concomitant]
     Route: 048
     Dates: start: 20080702
  4. PRINZIDE [Concomitant]
     Indication: DRUG USE FOR UNKNOWN INDICATION
     Dosage: 20/25MILLIGRAMS 3 TIMES A DAY.
     Route: 048
  5. POTASSIUM CHLORIDE [Concomitant]
     Indication: MINERAL SUPPLEMENTATION
     Route: 048
  6. MELOXICAM [Concomitant]
     Indication: RHEUMATOID ARTHRITIS
     Route: 048
  7. METHOTREXATE [Concomitant]
     Indication: RHEUMATOID ARTHRITIS
     Dosage: 4 TABS(2.5MG TABS) PER WEEK
     Route: 048
  8. PREDNISONE TAB [Concomitant]
     Indication: RHEUMATOID ARTHRITIS
     Dosage: 4 X 10MG FOR 3 DAYS
     Route: 048
     Dates: start: 20080623, end: 20080625
  9. PREDNISONE TAB [Concomitant]
     Dosage: 30MILLIGRAMS X3 DAYS
     Route: 048
     Dates: start: 20080626, end: 20080628
  10. PREDNISONE TAB [Concomitant]
     Dosage: 20MILLIGRAMS X3 DAYS
     Route: 048
     Dates: start: 20080629, end: 20080702
  11. PREDNISONE TAB [Concomitant]
     Dosage: 10MILLIGRAMS X3 DAYS
     Route: 048
     Dates: start: 20080603, end: 20080605
  12. FUROSEMIDE [Concomitant]
     Indication: BLOOD PRESSURE
     Route: 048
  13. CELECOXIB [Concomitant]
     Indication: RHEUMATOID ARTHRITIS
     Route: 048
  14. OMEPRAZOLE MAGNESIUM [Concomitant]
     Route: 048

REACTIONS (4)
  - EAR INFECTION [None]
  - FATIGUE [None]
  - PAIN [None]
  - PYREXIA [None]
